FAERS Safety Report 7749681-5 (Version None)
Quarter: 2011Q3

REPORT INFORMATION
  Report Type: 
  Country: None (occurrence: None)
  Receive Date: 20110914
  Receipt Date: 20110913
  Transmission Date: 20111222
  Serious: Yes (Other)
  Sender: FDA-Public Use
  Company Number: RU-ROCHE-796505

PATIENT
  Sex: Male

DRUGS (2)
  1. COPEGUS [Concomitant]
     Indication: HEPATITIS C
     Dosage: FREQ: DAILY.
     Route: 048
     Dates: start: 20091002, end: 20100902
  2. PEGASYS [Suspect]
     Indication: HEPATITIS C
     Dosage: FREQ: WEEKLY; FORM: INJECTION.
     Route: 058
     Dates: start: 20091002, end: 20100902

REACTIONS (4)
  - THROMBOCYTOPENIA [None]
  - RED BLOOD CELL SEDIMENTATION RATE INCREASED [None]
  - DISTURBANCE IN ATTENTION [None]
  - DISEASE RECURRENCE [None]
